FAERS Safety Report 20134677 (Version 1)
Quarter: 2021Q4

REPORT INFORMATION
  Report Type: Spontaneous
  Country: US (occurrence: None)
  Receive Date: 20211130
  Receipt Date: 20211130
  Transmission Date: 20220303
  Serious: Yes (Hospitalization)
  Sender: FDA-Public Use
  Company Number: None

PATIENT
  Age: 42 Year
  Sex: Male

DRUGS (9)
  1. XOLAIR [Suspect]
     Active Substance: OMALIZUMAB
     Indication: Asthma
     Dosage: OTHER FREQUENCY : Q2WK;?
     Route: 058
     Dates: start: 20180109
  2. HIZENTRA [Concomitant]
     Active Substance: HUMAN IMMUNOGLOBULIN G
  3. ATORVASTATIN [Concomitant]
     Active Substance: ATORVASTATIN
  4. EDARBI [Concomitant]
     Active Substance: AZILSARTAN KAMEDOXOMIL
  5. OMEPRAZOLE [Concomitant]
     Active Substance: OMEPRAZOLE
  6. FLUCONAZOLE [Concomitant]
     Active Substance: FLUCONAZOLE
  7. GABAPENTIN [Concomitant]
     Active Substance: GABAPENTIN
  8. MONTELUKAST [Concomitant]
     Active Substance: MONTELUKAST SODIUM
  9. TRINTELLIX [Concomitant]
     Active Substance: VORTIOXETINE HYDROBROMIDE

REACTIONS (1)
  - Suture insertion [None]

NARRATIVE: CASE EVENT DATE: 20211129
